FAERS Safety Report 8943697 (Version 1)
Quarter: 2012Q4

REPORT INFORMATION
  Report Type: Report from Study
  Country: FI (occurrence: FI)
  Receive Date: 20121203
  Receipt Date: 20121203
  Transmission Date: 20130627
  Serious: Yes (Hospitalization)
  Sender: FDA-Public Use
  Company Number: FI-BAXTER-2012BAX025434

PATIENT
  Age: 35 Year
  Sex: Female
  Weight: 75 kg

DRUGS (5)
  1. SENDOXAN 1000 MG PULVER TIL INJEKSJONSV?SKE, OPPL?SNING [Suspect]
     Indication: BREAST CANCER
     Route: 065
  2. BEVACIZUMAB [Suspect]
     Indication: BREAST CANCER
     Route: 042
     Dates: start: 20090429
  3. BEVACIZUMAB [Suspect]
     Route: 042
     Dates: start: 20090520
  4. EPIRUBICIN [Suspect]
     Indication: BREAST CANCER
     Route: 065
  5. 5-FLUOROURACIL [Suspect]
     Indication: BREAST CANCER
     Route: 065

REACTIONS (1)
  - Pyelonephritis [Recovered/Resolved]
